FAERS Safety Report 24846457 (Version 1)
Quarter: 2025Q1

REPORT INFORMATION
  Report Type: Spontaneous
  Country: US (occurrence: US)
  Receive Date: 20250115
  Receipt Date: 20250115
  Transmission Date: 20250408
  Serious: No
  Sender: PFIZER
  Company Number: US-PFIZER INC-202500008998

PATIENT
  Age: 71 Year
  Sex: Female

DRUGS (2)
  1. BRAFTOVI [Interacting]
     Active Substance: ENCORAFENIB
     Indication: Cholangiocarcinoma
     Dosage: 450 MG, DAILY (75 MG TAKE 6 CAPSULES EQUAL TO 450 MG)
  2. OXYCODONE [Interacting]
     Active Substance: OXYCODONE

REACTIONS (3)
  - Therapeutic product effect decreased [Unknown]
  - Drug interaction [Unknown]
  - Off label use [Unknown]
